FAERS Safety Report 9903218 (Version 1)
Quarter: 2014Q1

REPORT INFORMATION
  Report Type: Spontaneous
  Country: US (occurrence: US)
  Receive Date: 20140217
  Receipt Date: 20140217
  Transmission Date: 20141002
  Serious: No
  Sender: FDA-Public Use
  Company Number: US-ASTRAZENECA-2013SE71155

PATIENT
  Age: 78 Year
  Sex: Male
  Weight: 72.6 kg

DRUGS (5)
  1. ATENOLOL [Suspect]
     Indication: BLOOD PRESSURE ABNORMAL
     Route: 048
     Dates: start: 1985
  2. PRILOSEC [Suspect]
     Indication: GASTROOESOPHAGEAL REFLUX DISEASE
     Route: 048
     Dates: start: 2003
  3. BETAPACE [Concomitant]
     Indication: ARRHYTHMIA
  4. COZAAR [Concomitant]
     Indication: BLOOD PRESSURE ABNORMAL
  5. NORVASC [Concomitant]
     Indication: BLOOD PRESSURE ABNORMAL

REACTIONS (1)
  - Chest pain [Recovered/Resolved]
